FAERS Safety Report 15004824 (Version 1)
Quarter: 2018Q2

REPORT INFORMATION
  Report Type: Spontaneous
  Country: NO (occurrence: NO)
  Receive Date: 20180613
  Receipt Date: 20180613
  Transmission Date: 20180711
  Serious: Yes (Hospitalization, Other)
  Sender: FDA-Public Use
  Company Number: NO-PFIZER INC-2018234147

PATIENT
  Age: 7 Decade
  Sex: Male

DRUGS (1)
  1. XALKORI [Suspect]
     Active Substance: CRIZOTINIB
     Indication: ADENOCARCINOMA
     Dosage: UNK
     Dates: start: 201703, end: 201712

REACTIONS (6)
  - Renal vein thrombosis [Unknown]
  - Pyrexia [Unknown]
  - Listless [Unknown]
  - Respiratory failure [Unknown]
  - Pneumonia [Unknown]
  - Neoplasm progression [Unknown]

NARRATIVE: CASE EVENT DATE: 201708
